FAERS Safety Report 9167799 (Version 2)
Quarter: 2013Q2

REPORT INFORMATION
  Report Type: Report from Study
  Country: JP (occurrence: JP)
  Receive Date: 20130318
  Receipt Date: 20130404
  Transmission Date: 20140414
  Serious: Yes (Hospitalization)
  Sender: FDA-Public Use
  Company Number: JP-VERTEX PHARMACEUTICALS INC.-2013-003609

PATIENT
  Age: 48 Year
  Sex: Female

DRUGS (17)
  1. VX-950 (TELAPREVIR) [Suspect]
     Indication: CHRONIC HEPATITIS C
     Dosage: 2250 MG, QD
     Route: 048
     Dates: start: 20120904, end: 20120918
  2. VX-950 (TELAPREVIR) [Suspect]
     Dosage: 1500 MG, QD
     Route: 048
     Dates: start: 20120919, end: 20121128
  3. PEGINTERFERON ALFA-2B [Concomitant]
     Dosage: 1.5 ?G/KG, QW
     Route: 058
     Dates: start: 20120904, end: 20121205
  4. RIBAVIRIN [Concomitant]
     Dosage: 800 MG, QD
     Route: 048
     Dates: start: 20120904, end: 20120926
  5. RIBAVIRIN [Concomitant]
     Dosage: 600 MG, QD
     Route: 048
     Dates: start: 20120927, end: 20121128
  6. RIBAVIRIN [Concomitant]
     Dosage: 800 MG, QD
     Route: 048
     Dates: start: 20121129, end: 20121205
  7. MAGMITT [Concomitant]
     Dosage: 990 MG, QD
     Route: 048
  8. SENNOSIDE [Concomitant]
     Dosage: 12 MG, QD
     Route: 048
  9. ETIZOLAM [Concomitant]
     Dosage: 1.0 MG, QD
     Route: 048
  10. LENDORMIN DAINIPPO [Concomitant]
     Dosage: 0.25 MG, QD
     Route: 048
  11. PINATOS [Concomitant]
     Dosage: 30 MG, QD
     Route: 048
  12. VIVIANT [Concomitant]
     Dosage: 20 MG, QD
     Route: 048
     Dates: start: 20120904, end: 20121212
  13. XYZAL [Concomitant]
     Dosage: 10 MG, QD
     Route: 048
     Dates: start: 20120904, end: 20121212
  14. SELBEX [Concomitant]
     Dosage: 1.5 G, QD
     Route: 048
     Dates: start: 20120904, end: 20121212
  15. PARIET [Concomitant]
     Dosage: 10 MG, QD
     Route: 048
     Dates: start: 20120921
  16. EURODIN [Concomitant]
     Dosage: 2 MG, QD
     Route: 048
     Dates: start: 20121206
  17. DORAL [Concomitant]
     Dosage: 20 MG, QD
     Route: 048
     Dates: start: 20121214

REACTIONS (1)
  - Depression [Not Recovered/Not Resolved]
